FAERS Safety Report 9139600 (Version 3)
Quarter: 2013Q2

REPORT INFORMATION
  Report Type: Spontaneous
  Country: IE (occurrence: IE)
  Receive Date: 20130305
  Receipt Date: 20130405
  Transmission Date: 20140414
  Serious: Yes (Other)
  Sender: FDA-Public Use
  Company Number: IE-JNJFOC-20130216628

PATIENT
  Age: 38 Year
  Sex: Male

DRUGS (3)
  1. REMICADE [Suspect]
     Indication: CROHN^S DISEASE
     Dosage: THIRD INFUSION
     Route: 042
     Dates: start: 20130131
  2. PENTASA [Concomitant]
     Indication: CROHN^S DISEASE
     Route: 048
  3. BUDESONIDE [Concomitant]
     Indication: CROHN^S DISEASE
     Route: 048

REACTIONS (4)
  - Nausea [Recovered/Resolved]
  - Dizziness [Recovered/Resolved]
  - Chest discomfort [Recovered/Resolved]
  - Paraesthesia [Recovered/Resolved]
